FAERS Safety Report 9468951 (Version 2)
Quarter: 2013Q3

REPORT INFORMATION
  Report Type: Spontaneous
  Country: GB (occurrence: None)
  Receive Date: 20130815
  Receipt Date: 20130829
  Transmission Date: 20140515
  Serious: Yes (Other)
  Sender: FDA-Public Use
  Company Number: AUR-APL-2013-06653

PATIENT
  Age: 44 Year
  Sex: Female
  Weight: 87 kg

DRUGS (13)
  1. MIRTAZAPINE [Suspect]
     Indication: PRODUCT USED FOR UNKNOWN INDICATION
     Route: 048
     Dates: start: 20130514, end: 20130616
  2. ATORVASTATIN  (ATORVASTATIN) [Concomitant]
  3. CIPROFLOXACIN (CIPROFLOXACIN) [Concomitant]
  4. GABAPENTIN (GABAPENTIN) [Concomitant]
  5. LANSOPRAZOLE (LANSOPRAZOLE) [Concomitant]
  6. LISINOPRIL (LISINOPRIL) [Concomitant]
  7. METFORMIN (METFORMIN) [Concomitant]
  8. ORAMORPH (MORPHINE SULFATE PENTAHYDRATE) [Concomitant]
  9. PARACETAMOL (PARACETAMOL) [Concomitant]
  10. QVAR (BECLOMETASONE DIPROPIONATE) [Concomitant]
  11. TRAMADOL (TRAMADOL) [Concomitant]
  12. VENLALIC XL (VENLAFAXINE HYDROCHLORIDE) [Concomitant]
  13. VENTOLIN (SALBUTAMOL) [Concomitant]

REACTIONS (2)
  - Hyperglycaemia [None]
  - Diabetes mellitus inadequate control [None]
